FAERS Safety Report 13414664 (Version 3)
Quarter: 2017Q2

REPORT INFORMATION
  Report Type: Spontaneous
  Country: DE (occurrence: DE)
  Receive Date: 20170406
  Receipt Date: 20170515
  Transmission Date: 20170830
  Serious: Yes (Life-Threatening)
  Sender: FDA-Public Use
  Company Number: DE-TEVA-754653GER

PATIENT
  Age: 55 Year
  Sex: Male
  Weight: 107 kg

DRUGS (4)
  1. HEPARIN-NATRIUM-25 000-RATIOPHARM [Suspect]
     Active Substance: HEPARIN SODIUM
     Dosage: AT 10:05 AM; IN HLM (HEART LUNG MACHINE)
     Dates: start: 20161224
  2. HEPARIN-NATRIUM-25 000-RATIOPHARM [Suspect]
     Active Substance: HEPARIN SODIUM
     Dosage: AT 11:47 AM; IN HLM (HEART LUNG MACHINE)
     Dates: start: 20161224
  3. HEPARIN-NATRIUM-25 000-RATIOPHARM [Suspect]
     Active Substance: HEPARIN SODIUM
     Dosage: AT 9:50 AM
     Route: 042
     Dates: start: 20161224
  4. HEPARIN-NATRIUM-25 000-RATIOPHARM [Suspect]
     Active Substance: HEPARIN SODIUM
     Dosage: AT 10:53 AM; IN HLM (HEART LUNG MACHINE)
     Dates: start: 20161224

REACTIONS (2)
  - Renal disorder [Unknown]
  - Drug effect incomplete [Unknown]

NARRATIVE: CASE EVENT DATE: 20161224
